FAERS Safety Report 9494291 (Version 3)
Quarter: 2013Q3

REPORT INFORMATION
  Report Type: Spontaneous
  Country: US (occurrence: US)
  Receive Date: 20130903
  Receipt Date: 20130913
  Transmission Date: 20140515
  Serious: Yes (Death, Hospitalization)
  Sender: FDA-Public Use
  Company Number: US-009507513-1308USA014305

PATIENT
  Age: 46 Year
  Sex: Male

DRUGS (7)
  1. ISENTRESS [Suspect]
     Indication: HIV INFECTION
     Dosage: UNK
     Route: 048
     Dates: start: 201208
  2. VIREAD [Concomitant]
  3. INSULIN [Concomitant]
  4. ZOLOFT [Concomitant]
  5. PHENERGAN (PROMETHAZINE HYDROCHLORIDE) [Concomitant]
  6. LASIX (FUROSEMIDE) [Concomitant]
  7. SERRAPEPTASE [Concomitant]

REACTIONS (2)
  - Death [Fatal]
  - Adverse event [Unknown]
